FAERS Safety Report 16036359 (Version 1)
Quarter: 2019Q1

REPORT INFORMATION
  Report Type: Spontaneous
  Country: US (occurrence: US)
  Receive Date: 20190305
  Receipt Date: 20190305
  Transmission Date: 20190418
  Serious: No
  Sender: FDA-Public Use
  Company Number: US-ALLERGAN-1844582US

PATIENT
  Sex: Female

DRUGS (4)
  1. ESTRACE [Suspect]
     Active Substance: ESTRADIOL
     Indication: INADEQUATE LUBRICATION
     Dosage: UNK UNK, Q WEEK
     Route: 067
     Dates: start: 2018
  2. CHOLESTEROL [Concomitant]
     Active Substance: CHOLESTEROL
     Indication: BLOOD CHOLESTEROL INCREASED
     Dosage: UNK
     Route: 048
  3. UNSPECIFIED NASAL [Concomitant]
     Indication: NASAL DISORDER
     Dosage: UNK
  4. ESTRACE [Suspect]
     Active Substance: ESTRADIOL
     Dosage: UNK UNK, QHS
     Route: 067
     Dates: start: 201807

REACTIONS (5)
  - Vaginal infection [Not Recovered/Not Resolved]
  - Vulvovaginal pruritus [Recovered/Resolved]
  - Vulvovaginal pain [Recovered/Resolved]
  - Bloody discharge [Recovered/Resolved]
  - Vulvovaginal erythema [Recovered/Resolved]

NARRATIVE: CASE EVENT DATE: 2018
